FAERS Safety Report 9227858 (Version 1)
Quarter: 2013Q2

REPORT INFORMATION
  Report Type: Report from Study
  Country: US (occurrence: US)
  Receive Date: 20130412
  Receipt Date: 20130412
  Transmission Date: 20140414
  Serious: Yes (Hospitalization)
  Sender: FDA-Public Use
  Company Number: US-CELGENEUS-163-21880-13041497

PATIENT
  Age: 74 Year
  Sex: Male

DRUGS (2)
  1. REVLIMID [Suspect]
     Indication: ACUTE MYELOID LEUKAEMIA
     Route: 048
  2. VIDAZA [Suspect]
     Indication: ACUTE MYELOID LEUKAEMIA
     Route: 065

REACTIONS (1)
  - Febrile neutropenia [Not Recovered/Not Resolved]
